FAERS Safety Report 9073287 (Version 1)
Quarter: 2013Q1

REPORT INFORMATION
  Report Type: Spontaneous
  Country: US (occurrence: US)
  Receive Date: 20130129
  Receipt Date: 20130129
  Transmission Date: 20140127
  Serious: No
  Sender: FDA-Public Use
  Company Number: US-ABBOTT-12P-163-0929212-00

PATIENT
  Sex: Female

DRUGS (3)
  1. HUMIRA 40 MG/ 0.8 ML PRE-FILLED SYRINGE [Suspect]
     Indication: RHEUMATOID ARTHRITIS
     Dates: start: 2002, end: 201202
  2. SIMVASTATIN [Concomitant]
     Indication: HYPERLIPIDAEMIA
  3. HYDROCODONE [Concomitant]
     Indication: PAIN

REACTIONS (1)
  - Rheumatoid arthritis [Not Recovered/Not Resolved]
